FAERS Safety Report 8075071-4 (Version None)
Quarter: 2012Q1

REPORT INFORMATION
  Report Type: 
  Country: None (occurrence: None)
  Receive Date: 20120127
  Receipt Date: 20120119
  Transmission Date: 20120608
  Serious: No
  Sender: FDA-Public Use
  Company Number: US-BIOGENIDEC-2012BI002422

PATIENT
  Sex: Female

DRUGS (2)
  1. TYSABRI [Suspect]
     Indication: MULTIPLE SCLEROSIS
     Route: 042
     Dates: start: 20110901
  2. AVONEX [Concomitant]
     Indication: MULTIPLE SCLEROSIS
     Route: 030

REACTIONS (11)
  - WHITE BLOOD CELL COUNT INCREASED [None]
  - ARTHRALGIA [None]
  - NEURALGIA [None]
  - ANXIETY [None]
  - SPEECH DISORDER [None]
  - VISION BLURRED [None]
  - BLINDNESS UNILATERAL [None]
  - FEELING COLD [None]
  - INJECTION SITE INDURATION [None]
  - FUNGAL INFECTION [None]
  - DEPRESSED MOOD [None]
